FAERS Safety Report 9518990 (Version 3)
Quarter: 2013Q4

REPORT INFORMATION
  Report Type: Report from Study
  Country: JP (occurrence: JP)
  Receive Date: 20130912
  Receipt Date: 20131106
  Transmission Date: 20140711
  Serious: Yes (Hospitalization)
  Sender: FDA-Public Use
  Company Number: JP-SHIRE-ALL1-2013-05408

PATIENT
  Age: 19 Year
  Sex: Male
  Weight: 28 kg

DRUGS (3)
  1. IDURSULFASE [Suspect]
     Indication: MUCOPOLYSACCHARIDOSIS II
     Dosage: 12 MG, 1X/WEEK
     Route: 041
     Dates: start: 20100325, end: 20121225
  2. IDURSULFASE [Suspect]
     Dosage: 18 MG, UNKNOWN
     Route: 041
     Dates: start: 20121227
  3. OTHER THERAPEUTIC PRODUCTS [Concomitant]
     Indication: PREMEDICATION
     Dosage: UNK, UNKNOWN
     Route: 065
     Dates: start: 20100325, end: 2012

REACTIONS (1)
  - Femur fracture [Recovered/Resolved]
